FAERS Safety Report 4520144-3 (Version None)
Quarter: 2004Q4

REPORT INFORMATION
  Report Type: 
  Country: None (occurrence: None)
  Receive Date: 20041029
  Receipt Date: 20040715
  Transmission Date: 20050328
  Serious: No
  Sender: FDA-Public Use
  Company Number: WAES 0407USA01371

PATIENT
  Age: 67 Year
  Sex: Female

DRUGS (5)
  1. EMEND [Suspect]
     Indication: CHEMOTHERAPY
     Dosage: 125 MG/UNK/PO
     Route: 048
     Dates: start: 20040714
  2. EMEND [Suspect]
     Indication: PROPHYLAXIS
     Dosage: 125 MG/UNK/PO
     Route: 048
     Dates: start: 20040714
  3. CYTOXAN [Concomitant]
  4. DECADRON (DEXAMETHASONE ACETATE) [Concomitant]
  5. CISPLATIN [Concomitant]

REACTIONS (1)
  - NAUSEA [None]
